FAERS Safety Report 15603690 (Version 1)
Quarter: 2018Q4

REPORT INFORMATION
  Report Type: Spontaneous
  Country: US (occurrence: US)
  Receive Date: 20181109
  Receipt Date: 20181109
  Transmission Date: 20190205
  Serious: Yes (Life-Threatening, Other)
  Sender: FDA-Public Use
  Company Number: US-PFIZER INC-2018456974

PATIENT
  Age: 63 Year
  Sex: Male

DRUGS (1)
  1. TRANEXAMIC ACID. [Suspect]
     Active Substance: TRANEXAMIC ACID
     Indication: HAEMORRHAGE PROPHYLAXIS
     Dosage: 200 MG, UNK
     Route: 037

REACTIONS (2)
  - Incorrect route of product administration [Recovered/Resolved]
  - Myoclonus [Recovered/Resolved]
